FAERS Safety Report 5994709-6 (Version None)
Quarter: 2008Q4

REPORT INFORMATION
  Report Type: 
  Country: None (occurrence: None)
  Receive Date: 20081212
  Receipt Date: 20080609
  Transmission Date: 20090506
  Serious: No
  Sender: FDA-Public Use
  Company Number: US-AMGEN-KDL273056

PATIENT
  Sex: Female
  Weight: 72.6 kg

DRUGS (11)
  1. ENBREL [Suspect]
     Indication: PSORIASIS
     Route: 058
     Dates: start: 20080225
  2. CYCLOSPORINE [Concomitant]
     Route: 048
     Dates: start: 20071201
  3. PROTONIX [Concomitant]
  4. EFFEXOR [Concomitant]
  5. GABAPENTIN [Concomitant]
  6. BENICAR [Concomitant]
  7. ADVAIR HFA [Concomitant]
  8. SPIRIVA [Concomitant]
  9. SIMVASTATIN [Concomitant]
  10. ASPIRIN [Concomitant]
  11. ALLOPURINOL [Concomitant]

REACTIONS (1)
  - CARPAL TUNNEL SYNDROME [None]
